FAERS Safety Report 9597061 (Version 1)
Quarter: 2013Q4

REPORT INFORMATION
  Report Type: Report from Study
  Country: KR (occurrence: KR)
  Receive Date: 20131004
  Receipt Date: 20131004
  Transmission Date: 20140711
  Serious: Yes (Death)
  Sender: FDA-Public Use
  Company Number: KR-009507513-1310KOR002260

PATIENT
  Age: 72 Year
  Sex: Female
  Weight: 41.3 kg

DRUGS (7)
  1. POSACONAZOLE [Suspect]
     Indication: ANTIFUNGAL PROPHYLAXIS
     Dosage: 200 MG, TID
     Route: 048
     Dates: start: 20130711, end: 20130921
  2. DACOGEN [Concomitant]
     Indication: ACUTE MYELOID LEUKAEMIA
     Dosage: 25 MG, QD
     Route: 042
     Dates: start: 20130906, end: 20130910
  3. GRANULOCYTE-MACROPHAGE COLONY-STIMULATING FACTOR [Concomitant]
     Indication: NEUTROPENIA
     Dosage: 250 MICROGRAM, QD
     Route: 058
     Dates: start: 20130915, end: 20130925
  4. AMLOPIC [Concomitant]
     Indication: HYPERTENSION
     Dosage: 5 MG, QD
     Route: 048
     Dates: start: 20130825, end: 20130920
  5. INSULIN HUMAN [Concomitant]
     Indication: DIABETES MELLITUS
     Dosage: 15 IU FOR 24 HOURS
     Route: 042
     Dates: start: 20130825, end: 20130925
  6. DILATREND [Concomitant]
     Indication: HYPERTENSION
     Dosage: 6.25 MG, BID
     Route: 048
     Dates: start: 20130825, end: 20130920
  7. DIABEX [Concomitant]
     Indication: DIABETES MELLITUS
     Dosage: 250 MG, QD
     Route: 048
     Dates: start: 20130825, end: 20130920

REACTIONS (1)
  - Pneumonia [Fatal]
